FAERS Safety Report 5897315-7 (Version None)
Quarter: 2008Q3

REPORT INFORMATION
  Report Type: 
  Country: None (occurrence: None)
  Receive Date: 20080905
  Receipt Date: 20080515
  Transmission Date: 20090109
  Serious: Yes (Hospitalization)
  Sender: FDA-Public Use
  Company Number: T200800841

PATIENT
  Age: 40 Year
  Sex: Female

DRUGS (8)
  1. LORTAB [Suspect]
  2. ACTIQ [Suspect]
     Indication: PAIN
     Dosage: SEE IMAGE
     Route: 002
     Dates: end: 20010509
  3. ACTIQ [Suspect]
     Indication: PAIN
     Dosage: SEE IMAGE
     Route: 002
     Dates: start: 20010510, end: 20020824
  4. ACTIQ [Suspect]
     Indication: PAIN
     Dosage: SEE IMAGE
     Route: 002
     Dates: start: 20020825, end: 20030701
  5. DURAGESIC-100 [Suspect]
     Dosage: 50 UG, Q 1HR, TRANSDERMAL ; 75 UG, Q 1HR, TRANSDERMAL ; 100 UG, Q 1HR, TRANSDERMAL
     Route: 062
     Dates: start: 20010412, end: 20010813
  6. DURAGESIC-100 [Suspect]
     Dosage: 50 UG, Q 1HR, TRANSDERMAL ; 75 UG, Q 1HR, TRANSDERMAL ; 100 UG, Q 1HR, TRANSDERMAL
     Route: 062
     Dates: end: 20080411
  7. DURAGESIC-100 [Suspect]
     Dosage: 50 UG, Q 1HR, TRANSDERMAL ; 75 UG, Q 1HR, TRANSDERMAL ; 100 UG, Q 1HR, TRANSDERMAL
     Route: 062
     Dates: start: 20010814
  8. DIAZEPAM [Concomitant]

REACTIONS (2)
  - DENTAL CARIES [None]
  - DRUG DEPENDENCE [None]
